FAERS Safety Report 9485868 (Version 2)
Quarter: 2013Q3

REPORT INFORMATION
  Report Type: Spontaneous
  Country: US (occurrence: US)
  Receive Date: 20130829
  Receipt Date: 20130912
  Transmission Date: 20140515
  Serious: Yes (Life-Threatening, Hospitalization, Other)
  Sender: FDA-Public Use
  Company Number: PHEH2013US018233

PATIENT
  Sex: Male
  Weight: 108.8 kg

DRUGS (4)
  1. GLEEVEC [Suspect]
     Indication: CHRONIC MYELOID LEUKAEMIA
     Dosage: 100 MG, DAILY
     Route: 048
     Dates: start: 20130528, end: 20130810
  2. MEPRON [Concomitant]
     Dosage: UNK UKN, UNK
  3. COUMADINE [Concomitant]
     Dosage: UNK UKN, UNK
  4. RED BLOOD CELLS [Concomitant]
     Dosage: UNK UKN, UNK

REACTIONS (29)
  - Enterococcal infection [Unknown]
  - Pneumonia [Unknown]
  - Metabolic acidosis [Unknown]
  - Coagulopathy [Unknown]
  - General physical health deterioration [Unknown]
  - Pleural effusion [Unknown]
  - Acute respiratory failure [Unknown]
  - Hypoxia [Unknown]
  - Pyrexia [Unknown]
  - Dyspnoea [Unknown]
  - Malaise [Unknown]
  - Cardiac failure congestive [Unknown]
  - Oedema peripheral [Unknown]
  - Atrial fibrillation [Unknown]
  - Renal failure acute [Unknown]
  - Hypomagnesaemia [Unknown]
  - Interstitial lung disease [Unknown]
  - Pulmonary haemorrhage [Unknown]
  - Hypokalaemia [Unknown]
  - Hypophosphataemia [Unknown]
  - Hyponatraemia [Unknown]
  - Anaemia [Unknown]
  - Iron deficiency anaemia [Unknown]
  - Decreased appetite [Unknown]
  - Pulmonary oedema [Unknown]
  - Pulmonary congestion [Unknown]
  - Lymphadenopathy mediastinal [Unknown]
  - Cough [Unknown]
  - Diarrhoea [Unknown]
